FAERS Safety Report 10655352 (Version 2)
Quarter: 2014Q4

REPORT INFORMATION
  Report Type: Spontaneous
  Country: IT (occurrence: IT)
  Receive Date: 20141216
  Receipt Date: 20141230
  Transmission Date: 20150529
  Serious: Yes (Other)
  Sender: FDA-Public Use
  Company Number: IT-009507513-1412ITA007543

PATIENT
  Age: 70 Year
  Sex: Female

DRUGS (1)
  1. NORFLOXACIN [Suspect]
     Active Substance: NORFLOXACIN
     Indication: GASTROINTESTINAL INFECTION
     Route: 048

REACTIONS (1)
  - Systemic lupus erythematosus [Unknown]
